FAERS Safety Report 25339526 (Version 1)
Quarter: 2025Q2

REPORT INFORMATION
  Report Type: Spontaneous
  Country: GR (occurrence: GR)
  Receive Date: 20250521
  Receipt Date: 20250521
  Transmission Date: 20250717
  Serious: Yes (Hospitalization)
  Sender: CELLTRION
  Company Number: GR-CELLTRION INC.-2025GR014291

PATIENT

DRUGS (7)
  1. ADALIMUMAB [Suspect]
     Active Substance: ADALIMUMAB
     Indication: Erythrodermic psoriasis
  2. INFLIXIMAB [Suspect]
     Active Substance: INFLIXIMAB
     Indication: Erythrodermic psoriasis
  3. METHOTREXATE SODIUM [Suspect]
     Active Substance: METHOTREXATE SODIUM
     Indication: Erythrodermic psoriasis
  4. CYCLOSPORINE [Suspect]
     Active Substance: CYCLOSPORINE
     Indication: Erythrodermic psoriasis
  5. ACITRETIN [Suspect]
     Active Substance: ACITRETIN
     Indication: Erythrodermic psoriasis
  6. BRODALUMAB [Suspect]
     Active Substance: BRODALUMAB
     Indication: Erythrodermic psoriasis
  7. SECUKINUMAB [Suspect]
     Active Substance: SECUKINUMAB
     Indication: Erythrodermic psoriasis

REACTIONS (3)
  - Condition aggravated [Unknown]
  - Erythrodermic psoriasis [Unknown]
  - Off label use [Unknown]
